FAERS Safety Report 7827959-4 (Version None)
Quarter: 2011Q4

REPORT INFORMATION
  Report Type: 
  Country: None (occurrence: None)
  Receive Date: 20111020
  Receipt Date: 20111013
  Transmission Date: 20120403
  Serious: Yes (Other)
  Sender: FDA-Public Use
  Company Number: US-ACTELION-A-US2011-54168

PATIENT

DRUGS (2)
  1. COUMADIN [Concomitant]
  2. TRACLEER [Suspect]
     Indication: PULMONARY ARTERIAL HYPERTENSION
     Dosage: UNK
     Route: 048
     Dates: start: 20100928

REACTIONS (5)
  - SPINAL FUSION SURGERY [None]
  - SPINAL CORD OPERATION [None]
  - IRON DEFICIENCY [None]
  - INTERVERTEBRAL DISC DEGENERATION [None]
  - FATIGUE [None]
